FAERS Safety Report 8370086-0 (Version None)
Quarter: 2012Q1

REPORT INFORMATION
  Report Type: 
  Country: None (occurrence: None)
  Receive Date: 20120323
  Receipt Date: 20111122
  Transmission Date: 20120608
  Serious: Yes (Hospitalization)
  Sender: FDA-Public Use
  Company Number: 163-21880-11113167

PATIENT
  Age: 60 Year
  Sex: Male

DRUGS (9)
  1. MUCINEX DM (TUSSIN DM) [Concomitant]
  2. GLIPIZIDE [Concomitant]
  3. OXYCONTIN [Concomitant]
  4. CELEXA [Concomitant]
  5. SIMVASTATIN [Concomitant]
  6. CALCIUM CARBONATE [Concomitant]
  7. FERROUS SULFATE TAB [Concomitant]
  8. METFORMIN HCL [Concomitant]
  9. REVLIMID [Suspect]
     Indication: MULTIPLE MYELOMA
     Dosage: 15 MG, 1 IN 1 D, PO
     Route: 048
     Dates: start: 20110712

REACTIONS (1)
  - RASH [None]
